FAERS Safety Report 13563023 (Version 1)
Quarter: 2017Q2

REPORT INFORMATION
  Report Type: Spontaneous
  Country: JP (occurrence: JP)
  Receive Date: 20170519
  Receipt Date: 20170519
  Transmission Date: 20170830
  Serious: Yes (Life-Threatening)
  Sender: FDA-Public Use
  Company Number: JP-ASTRAZENECA-2017SE53214

PATIENT
  Age: 48 Year
  Sex: Female

DRUGS (14)
  1. SEROQUEL [Suspect]
     Active Substance: QUETIAPINE FUMARATE
     Indication: HUNTINGTON^S DISEASE
     Route: 048
     Dates: start: 20161107
  2. MAGMITT [Concomitant]
     Active Substance: MAGNESIUM OXIDE
  3. GASMOTIN [Concomitant]
     Active Substance: MOSAPRIDE CITRATE
  4. NAUZELIN [Concomitant]
     Active Substance: DOMPERIDONE
  5. RISPERDAL [Suspect]
     Active Substance: RISPERIDONE
     Indication: HUNTINGTON^S DISEASE
     Route: 048
     Dates: start: 20161107
  6. FAMOTIDINE. [Concomitant]
     Active Substance: FAMOTIDINE
  7. APOPLON [Concomitant]
  8. AMITIZA [Concomitant]
     Active Substance: LUBIPROSTONE
  9. SEROQUEL [Suspect]
     Active Substance: QUETIAPINE FUMARATE
     Indication: HUNTINGTON^S DISEASE
     Route: 048
     Dates: start: 20111013, end: 20161106
  10. DIAZEPAM. [Concomitant]
     Active Substance: DIAZEPAM
  11. PANTETHINE [Concomitant]
     Active Substance: PANTETHINE
  12. CLARITHROMYCIN. [Concomitant]
     Active Substance: CLARITHROMYCIN
  13. RISPERDAL [Suspect]
     Active Substance: RISPERIDONE
     Indication: HUNTINGTON^S DISEASE
     Route: 048
     Dates: start: 20111013, end: 20161106
  14. GASCON [Concomitant]
     Active Substance: DIMETHICONE

REACTIONS (3)
  - Neuroleptic malignant syndrome [Recovered/Resolved]
  - Disseminated intravascular coagulation [Recovered/Resolved]
  - Off label use [Unknown]

NARRATIVE: CASE EVENT DATE: 20111013
